FAERS Safety Report 6364541-2 (Version None)
Quarter: 2009Q3

REPORT INFORMATION
  Report Type: 
  Country: None (occurrence: None)
  Receive Date: 20090919
  Receipt Date: 20090723
  Transmission Date: 20100115
  Serious: No
  Sender: FDA-Public Use
  Company Number: US-ABBOTT-09P-163-0587817-00

PATIENT
  Sex: Female
  Weight: 131.66 kg

DRUGS (11)
  1. HUMIRA [Suspect]
     Indication: PSORIASIS
     Dates: start: 20090501
  2. LISINOPRIL [Concomitant]
     Indication: RENAL DISORDER
  3. PREVACID [Concomitant]
     Indication: GASTROOESOPHAGEAL REFLUX DISEASE
  4. METFORMIN HCL [Concomitant]
     Indication: DIABETES MELLITUS
  5. SIMVASTATIN [Concomitant]
     Indication: BLOOD CHOLESTEROL INCREASED
  6. WELCHOL [Concomitant]
     Indication: GASTROINTESTINAL DISORDER
  7. NOVOLOG [Concomitant]
     Indication: DIABETES MELLITUS
  8. LANTUS [Concomitant]
     Indication: DIABETES MELLITUS
  9. ACTONEL [Concomitant]
     Indication: OSTEOPOROSIS
  10. AMOXICILLIN [Concomitant]
     Indication: DENTAL DISORDER PROPHYLAXIS
  11. NITROGLYCERIN [Concomitant]
     Indication: CHEST PAIN

REACTIONS (1)
  - INJECTION SITE PAIN [None]
